FAERS Safety Report 11448454 (Version 1)
Quarter: 2015Q3

REPORT INFORMATION
  Report Type: Spontaneous
  Country: GB (occurrence: GB)
  Receive Date: 20150902
  Receipt Date: 20150902
  Transmission Date: 20151125
  Serious: Yes (Other)
  Sender: FDA-Public Use
  Company Number: GB-ASTRAZENECA-2015SE82032

PATIENT
  Age: 63 Year
  Sex: Female
  Weight: 70 kg

DRUGS (4)
  1. DAPAGLIFLOZIN [Suspect]
     Active Substance: DAPAGLIFLOZIN
     Route: 048
     Dates: start: 20150413
  2. GLICLAZIDE [Concomitant]
     Active Substance: GLICLAZIDE
     Dates: start: 20140909
  3. GLUCOPHAGE [Concomitant]
     Active Substance: METFORMIN HYDROCHLORIDE
     Dates: start: 20141015
  4. ROSUVASTATIN [Concomitant]
     Active Substance: ROSUVASTATIN
     Dates: start: 20150413

REACTIONS (1)
  - Depression [Recovering/Resolving]

NARRATIVE: CASE EVENT DATE: 20150501
